FAERS Safety Report 4945345-1 (Version None)
Quarter: 2006Q1

REPORT INFORMATION
  Report Type: 
  Country: None (occurrence: None)
  Receive Date: 20060315
  Receipt Date: 20060315
  Transmission Date: 20060701
  Serious: Yes (Hospitalization)
  Sender: FDA-Public Use
  Company Number: None

PATIENT
  Age: 59 Year
  Sex: Male
  Weight: 75 kg

DRUGS (10)
  1. AZTREONAM [Suspect]
     Indication: PNEUMONIA
     Dosage: 500MG IV Q 8 HOURS
     Route: 042
  2. CLINDAMYCIN [Suspect]
     Dosage: 600MG IV Q 6 HOURS
     Route: 042
  3. CLINDAMYCIN [Concomitant]
  4. AZTREONAM [Concomitant]
  5. RANITIDINE [Concomitant]
  6. BACLOFEN [Concomitant]
  7. DOCUSATE [Concomitant]
  8. ATENOLOL [Concomitant]
  9. LOVASTATIN [Concomitant]
  10. ASPIRIN [Concomitant]

REACTIONS (2)
  - DRUG PRESCRIBING ERROR [None]
  - RASH MACULO-PAPULAR [None]
